FAERS Safety Report 8590848-4 (Version None)
Quarter: 2012Q3

REPORT INFORMATION
  Report Type: 
  Country: None (occurrence: None)
  Receive Date: 20120813
  Receipt Date: 20120806
  Transmission Date: 20120928
  Serious: Yes (Hospitalization)
  Sender: FDA-Public Use
  Company Number: DE-UCBSA-063285

PATIENT
  Age: 47 Year
  Sex: Female
  Weight: 90 kg

DRUGS (4)
  1. CARBAMAZEPINE [Suspect]
     Dosage: 400
  2. DIPIPERON [Suspect]
     Dosage: UNKNOWN DOSE
  3. KEPPRA [Suspect]
     Dosage: UNKNOWN DOSE
  4. GABAPENTIN [Suspect]
     Dosage: UNKNOWN DOSE

REACTIONS (3)
  - SOMNOLENCE [None]
  - NAUSEA [None]
  - VOMITING [None]
